FAERS Safety Report 7513367-2 (Version None)
Quarter: 2011Q2

REPORT INFORMATION
  Report Type: 
  Country: None (occurrence: None)
  Receive Date: 20110531
  Receipt Date: 20110524
  Transmission Date: 20111010
  Serious: Yes (Death, Other)
  Sender: FDA-Public Use
  Company Number: BR-MEDIMMUNE-MEDI-0013240

PATIENT
  Sex: Male

DRUGS (1)
  1. SYNAGIS [Suspect]
     Indication: CONGENITAL CARDIOVASCULAR ANOMALY
     Dates: start: 20110418

REACTIONS (10)
  - PNEUMONIA [None]
  - ASTHMA [None]
  - INFLUENZA [None]
  - LUNG INFECTION [None]
  - CARDIAC INFECTION [None]
  - ACUTE RESPIRATORY FAILURE [None]
  - BRONCHITIS [None]
  - DYSPNOEA [None]
  - CONGENITAL CARDIOVASCULAR ANOMALY [None]
  - POST PROCEDURAL COMPLICATION [None]
